FAERS Safety Report 7546703-1 (Version None)
Quarter: 2011Q2

REPORT INFORMATION
  Report Type: 
  Country: None (occurrence: None)
  Receive Date: 20110614
  Receipt Date: 20110526
  Transmission Date: 20111010
  Serious: Yes (Hospitalization)
  Sender: FDA-Public Use
  Company Number: A0866118A

PATIENT
  Age: 68 Year
  Sex: Female

DRUGS (2)
  1. AVANDIA [Suspect]
     Dosage: 2MG PER DAY
     Route: 048
     Dates: start: 20070823, end: 20070919
  2. AVANDAMET [Suspect]
     Route: 048

REACTIONS (9)
  - TRAUMATIC LUNG INJURY [None]
  - MYOCARDIAL INFARCTION [None]
  - CONVULSION [None]
  - ASTHENIA [None]
  - CARDIOGENIC SHOCK [None]
  - CARDIAC FAILURE CONGESTIVE [None]
  - CARDIAC DISORDER [None]
  - RENAL FAILURE [None]
  - RESPIRATORY FAILURE [None]
